FAERS Safety Report 8597424-8 (Version None)
Quarter: 2012Q3

REPORT INFORMATION
  Report Type: 
  Country: None (occurrence: None)
  Receive Date: 20120816
  Receipt Date: 20120806
  Transmission Date: 20120928
  Serious: Yes (Other)
  Sender: FDA-Public Use
  Company Number: US-JNJFOC-20120804054

PATIENT
  Sex: Female
  Weight: 45.36 kg

DRUGS (3)
  1. HYDROCODONE BITARTRATE [Suspect]
     Indication: PAIN
     Dosage: 5/325 MG
     Route: 048
  2. DURAGESIC-100 [Suspect]
     Indication: BACK PAIN
     Route: 062
     Dates: start: 20100101
  3. HYDROCODONE BITARTRATE [Suspect]
     Dosage: 5/500 MG
     Route: 048

REACTIONS (7)
  - WEIGHT DECREASED [None]
  - INAPPROPRIATE SCHEDULE OF DRUG ADMINISTRATION [None]
  - PAIN [None]
  - DRUG DOSE OMISSION [None]
  - MUSCULOSKELETAL PAIN [None]
  - ARTHRITIS [None]
  - FEELING ABNORMAL [None]
